FAERS Safety Report 9909619 (Version 2)
Quarter: 2014Q2

REPORT INFORMATION
  Report Type: Spontaneous
  Country: US (occurrence: US)
  Receive Date: 20140219
  Receipt Date: 20140627
  Transmission Date: 20141212
  Serious: Yes (Hospitalization)
  Sender: FDA-Public Use
  Company Number: US-GLAXOSMITHKLINE-A1060657A

PATIENT
  Age: 70 Year
  Sex: Male
  Weight: 82.7 kg

DRUGS (4)
  1. ADVAIR HFA [Suspect]
     Indication: ASTHMA
     Dosage: 2PUFF PER DAY
     Route: 055
  2. VERAMYST [Suspect]
     Indication: PRODUCT USED FOR UNKNOWN INDICATION
     Dosage: 27.5MCG UNKNOWN
     Route: 045
  3. VENTOLIN HFA [Suspect]
     Indication: ASTHMA
     Dosage: 90MCG AS REQUIRED
     Route: 055
  4. ALBUTEROL NEBULIZER [Concomitant]

REACTIONS (4)
  - Investigation [Recovering/Resolving]
  - Off label use [Recovering/Resolving]
  - Dyspnoea [Recovering/Resolving]
  - Drug administration error [Unknown]
